FAERS Safety Report 7620221-4 (Version None)
Quarter: 2011Q3

REPORT INFORMATION
  Report Type: 
  Country: None (occurrence: None)
  Receive Date: 20110719
  Receipt Date: 20110706
  Transmission Date: 20111222
  Serious: Yes (Other)
  Sender: FDA-Public Use
  Company Number: PHFR2011GB01605

PATIENT
  Sex: Female

DRUGS (8)
  1. AMISULPRIDE [Suspect]
     Dosage: 600 MG/DAY
     Route: 048
  2. CLOZAPINE [Suspect]
     Indication: SCHIZOPHRENIA
     Route: 048
     Dates: start: 20101018
  3. CLONAZEPAM [Concomitant]
     Dosage: 0.5 G/DAY
  4. CLOZAPINE [Suspect]
     Dosage: 200 MG/DAY
     Route: 048
  5. CITALOPRAM HYDROBROMIDE [Concomitant]
     Dosage: 20 MG/DAY
  6. HYOSCINE [Concomitant]
     Dosage: 300 UG/DAY
  7. CLOZAPINE [Suspect]
     Dosage: 50 MG, DAILY
     Route: 048
  8. VALPROATE SODIUM [Concomitant]
     Indication: CONVULSION
     Dosage: 1 G, BID

REACTIONS (5)
  - FACIAL BONES FRACTURE [None]
  - TACHYCARDIA [None]
  - EPILEPSY [None]
  - TOOTH LOSS [None]
  - DIZZINESS [None]
